FAERS Safety Report 7762067-2 (Version None)
Quarter: 2011Q3

REPORT INFORMATION
  Report Type: 
  Country: None (occurrence: None)
  Receive Date: 20110920
  Receipt Date: 20110920
  Transmission Date: 20111222
  Serious: No
  Sender: FDA-Public Use
  Company Number: None

PATIENT
  Sex: Female
  Weight: 124.73 kg

DRUGS (1)
  1. ALENDRONATE SODIUM [Suspect]
     Indication: OSTEOPOROSIS
     Dosage: 35 MG.
     Dates: start: 20110912, end: 20110919

REACTIONS (3)
  - ERYTHEMA [None]
  - SKIN SWELLING [None]
  - OEDEMA PERIPHERAL [None]
